FAERS Safety Report 18124151 (Version 1)
Quarter: 2020Q3

REPORT INFORMATION
  Report Type: Spontaneous
  Country: US (occurrence: US)
  Receive Date: 20200807
  Receipt Date: 20200807
  Transmission Date: 20201103
  Serious: Yes (Disabling)
  Sender: FDA-Public Use
  Company Number: None

PATIENT
  Age: 64 Year
  Sex: Female
  Weight: 65.25 kg

DRUGS (4)
  1. VITAMIN D LIQUID [Concomitant]
  2. D VI SOL [Concomitant]
  3. WP THYROID [Suspect]
     Active Substance: THYROID, PORCINE
     Indication: THYROID HORMONE REPLACEMENT THERAPY
     Dosage: ?          QUANTITY:2 TABLET(S);?
     Route: 048
     Dates: start: 20200605, end: 20200613
  4. NP THYROID [Concomitant]
     Active Substance: LEVOTHYROXINE\LIOTHYRONINE

REACTIONS (6)
  - Sensory disturbance [None]
  - Neuropathy peripheral [None]
  - Pain in extremity [None]
  - Nervous system disorder [None]
  - Product formulation issue [None]
  - Burning sensation [None]

NARRATIVE: CASE EVENT DATE: 20200605
